APPROVED DRUG PRODUCT: MEPERIDINE HYDROCHLORIDE
Active Ingredient: MEPERIDINE HYDROCHLORIDE
Strength: 100MG
Dosage Form/Route: TABLET;ORAL
Application: A040191 | Product #002
Applicant: STRIDES PHARMA INTERNATIONAL AG
Approved: Dec 17, 1998 | RLD: No | RS: No | Type: DISCN